FAERS Safety Report 6208625-8 (Version None)
Quarter: 2009Q2

REPORT INFORMATION
  Report Type: 
  Country: None (occurrence: None)
  Receive Date: 20090529
  Receipt Date: 20090526
  Transmission Date: 20091009
  Serious: Yes (Other)
  Sender: FDA-Public Use
  Company Number: US-JNJFOC-20090506448

PATIENT
  Age: 52 Year
  Sex: Female
  Weight: 50.8 kg

DRUGS (8)
  1. IMODIUM MULTI-SYMPTOM RELIEF [Suspect]
     Route: 048
  2. IMODIUM MULTI-SYMPTOM RELIEF [Suspect]
     Indication: DIARRHOEA
     Dosage: 1 ON FRIDAY, 2 ON SATURDAY AND SUNDAY, AND 4 ON MONDAY
     Route: 048
  3. DOANS PILLS [Concomitant]
     Indication: PAIN
     Dosage: 1/2 CAPLETS DAILY FOR COUPLE OF YEARS
  4. LOVASTATIN [Concomitant]
     Indication: BLOOD CHOLESTEROL INCREASED
     Dosage: SINCE 5-6 YEARS
  5. LISINOPRIL [Concomitant]
     Indication: HYPERTENSION
  6. TYLENOL SINUS [Concomitant]
     Indication: HYPERSENSITIVITY
     Dosage: 2 AS NECESSARY FOR 5-6 YEARS
  7. PRILOSEC [Concomitant]
     Indication: GASTROOESOPHAGEAL REFLUX DISEASE
     Dosage: 1-5 AS NEEDED FOR YEARS
  8. CIPRO [Concomitant]
     Indication: RENAL DISORDER

REACTIONS (2)
  - HAEMATOCHEZIA [None]
  - INCORRECT DRUG ADMINISTRATION DURATION [None]
